FAERS Safety Report 17470577 (Version 1)
Quarter: 2020Q1

REPORT INFORMATION
  Report Type: Spontaneous
  Country: US (occurrence: US)
  Receive Date: 20200227
  Receipt Date: 20200227
  Transmission Date: 20200409
  Serious: Yes (Other)
  Sender: FDA-Public Use
  Company Number: US-ALLERGAN-2008510US

PATIENT
  Sex: Female

DRUGS (1)
  1. LO LOESTRIN FE [Suspect]
     Active Substance: ETHINYL ESTRADIOL\NORETHINDRONE ACETATE
     Indication: HORMONE REPLACEMENT THERAPY

REACTIONS (11)
  - Emotional distress [Unknown]
  - Brain injury [Unknown]
  - Product use in unapproved indication [Unknown]
  - Pain [Unknown]
  - Impaired work ability [Unknown]
  - Injury [Unknown]
  - Anhedonia [Unknown]
  - Cardiac arrest [Unknown]
  - Mental disorder [Unknown]
  - Pulmonary embolism [Unknown]
  - Impaired quality of life [Unknown]

NARRATIVE: CASE EVENT DATE: 20180923
